FAERS Safety Report 7367992-2 (Version None)
Quarter: 2011Q1

REPORT INFORMATION
  Report Type: 
  Country: None (occurrence: None)
  Receive Date: 20110322
  Receipt Date: 20090227
  Transmission Date: 20110831
  Serious: Yes (Hospitalization, Other)
  Sender: FDA-Public Use
  Company Number: US-BAYER-200914355NA

PATIENT
  Sex: Male
  Weight: 106.8 kg

DRUGS (36)
  1. NIPRIDE [Concomitant]
     Dosage: UNK
     Dates: start: 20070205
  2. BLOOD CELLS, PACKED HUMAN [Concomitant]
     Dosage: 2 U, UNK
     Dates: start: 20070205
  3. TRASYLOL [Suspect]
     Indication: CORONARY ARTERY BYPASS
     Dosage: 200 ML, ONCE
     Route: 042
     Dates: start: 20070205, end: 20070205
  4. MIDAZOLAM [Concomitant]
     Dosage: UNK
     Dates: start: 20070205
  5. APROTININ [Concomitant]
     Dosage: UNK
     Dates: start: 20070205, end: 20070205
  6. PROTAMINE SULFATE [Concomitant]
     Dosage: UNK
     Dates: start: 20070205
  7. METOPROLOL [Concomitant]
     Dosage: 125 MG, BID
     Dates: start: 20070201
  8. CEFAZOLIN [Concomitant]
     Dosage: UNK
     Dates: start: 20070201
  9. TOBRAMYCIN [Concomitant]
     Dosage: UNK
     Dates: start: 20070201
  10. NEO-SYNEPHRINOL [Concomitant]
     Dosage: UNK
     Dates: start: 20070205
  11. INSULIN [Concomitant]
     Dosage: 4 UNK, UNK
     Route: 042
     Dates: start: 20070205
  12. POTASSIUM CHLORIDE [Concomitant]
     Dosage: 30 MEQ, UNK
     Route: 042
     Dates: start: 20050205
  13. SODIUM BICARBONATE [Concomitant]
     Dosage: 2 UNK, UNK
     Route: 042
     Dates: start: 20070205
  14. INSULIN [Concomitant]
  15. SYNTHROID [Concomitant]
     Dosage: 150 MCG/24HR, UNK
     Route: 048
  16. PERSANTINE [Concomitant]
     Dosage: 50 MG, TID
     Route: 048
  17. ASPIRIN [Concomitant]
     Dosage: 81 MG, QD
     Route: 048
  18. CIPROFLOXACIN [Concomitant]
     Dosage: UNK
     Dates: start: 20070201
  19. LASIX [Concomitant]
  20. TRASYLOL [Suspect]
  21. NITROGLYCERIN [Concomitant]
     Dosage: UNK
  22. VANCOMYCIN [Concomitant]
     Dosage: 1 G, UNK
     Route: 042
     Dates: start: 20070205
  23. LEVOPHED [Concomitant]
     Dosage: UNK
     Dates: start: 20070205
  24. EPINEPHRINE [Concomitant]
     Dosage: UNK
     Route: 042
     Dates: start: 20070205
  25. CALCIUM CHLORIDE [Concomitant]
     Dosage: 2 G, UNK
     Route: 042
     Dates: start: 20070205
  26. CALCIUM [Concomitant]
     Dosage: 600 MG, BID
     Route: 048
  27. DIGOXIN [Concomitant]
     Dosage: UNK
     Dates: start: 20070201
  28. TRASYLOL [Suspect]
     Indication: MITRAL VALVE REPAIR
     Dosage: 50ML/HR  UNK, UNK
     Dates: start: 20070205, end: 20070205
  29. VECURONIUM BROMIDE [Concomitant]
     Dosage: UNK
     Dates: start: 20070205
  30. HEPARIN [Concomitant]
     Dosage: UNK
     Dates: start: 20070205
  31. CENTRUM [Concomitant]
     Dosage: 1 DF, QD
     Route: 048
  32. ATORVASTATIN CALCIUM [Concomitant]
     Dosage: UNK
     Dates: start: 20070201
  33. FUROSEMIDE [Concomitant]
     Dosage: UNK
     Dates: start: 20070201
  34. FENTANYL [Concomitant]
     Dosage: UNK
     Dates: start: 20070205
  35. PHENYLEPHRINE [Concomitant]
  36. VANCOMYCIN [Concomitant]
     Dosage: UNK
     Dates: start: 20070201

REACTIONS (14)
  - CEREBROVASCULAR ACCIDENT [None]
  - ANXIETY [None]
  - TOE AMPUTATION [None]
  - MYOCARDIAL INFARCTION [None]
  - EMOTIONAL DISTRESS [None]
  - STRESS [None]
  - UNEVALUABLE EVENT [None]
  - RENAL FAILURE [None]
  - FEAR [None]
  - FINGER AMPUTATION [None]
  - RENAL IMPAIRMENT [None]
  - FOOT AMPUTATION [None]
  - RENAL INJURY [None]
  - PAIN [None]
